FAERS Safety Report 19956587 (Version 2)
Quarter: 2021Q4

REPORT INFORMATION
  Report Type: Report from Study
  Country: US (occurrence: US)
  Receive Date: 20211014
  Receipt Date: 20211102
  Transmission Date: 20220303
  Serious: Yes (Hospitalization)
  Sender: FDA-Public Use
  Company Number: US-NEKTAR THERAPEUTICS-2021214103182

PATIENT
  Age: 83 Year
  Sex: Male

DRUGS (4)
  1. BEMPEGALDESLEUKIN [Suspect]
     Active Substance: BEMPEGALDESLEUKIN
     Indication: Transitional cell carcinoma
     Dosage: 0.006 MILLIGRAM/KILOGRAM/0.399 MG
     Route: 042
     Dates: start: 20200505, end: 20210720
  2. NIVOLUMAB [Suspect]
     Active Substance: NIVOLUMAB
     Indication: Transitional cell carcinoma
     Dosage: 360 MILLIGRAM (360MG/36ML)
     Route: 042
     Dates: start: 20200505, end: 20210720
  3. ENFORTUMAB VEDOTIN [Concomitant]
     Active Substance: ENFORTUMAB VEDOTIN
     Indication: Bladder transitional cell carcinoma stage IV
     Dosage: UNK
     Route: 065
     Dates: start: 20210812, end: 20210916
  4. CABOZANTINIB [Concomitant]
     Active Substance: CABOZANTINIB
     Indication: Bladder transitional cell carcinoma stage IV
     Dosage: UNK
     Route: 065
     Dates: start: 20210812

REACTIONS (1)
  - Hyponatraemia [Recovering/Resolving]

NARRATIVE: CASE EVENT DATE: 20210923
